FAERS Safety Report 4597316-5 (Version None)
Quarter: 2005Q1

REPORT INFORMATION
  Report Type: 
  Country: None (occurrence: None)
  Receive Date: 20050303
  Receipt Date: 20040907
  Transmission Date: 20050727
  Serious: No
  Sender: FDA-Public Use
  Company Number: US-GLAXOSMITHKLINE-A0524765A

PATIENT
  Age: 35 Year
  Sex: Female

DRUGS (3)
  1. DEXEDRINE [Suspect]
     Dosage: 10MG TWICE PER DAY
     Route: 048
     Dates: start: 20020731
  2. CLONAZEPAM [Concomitant]
  3. SEROQUEL [Concomitant]

REACTIONS (6)
  - DIZZINESS [None]
  - DRUG INEFFECTIVE [None]
  - DYSARTHRIA [None]
  - FEELING ABNORMAL [None]
  - HYPERHIDROSIS [None]
  - VISION BLURRED [None]
